FAERS Safety Report 10219433 (Version 1)
Quarter: 2014Q2

REPORT INFORMATION
  Report Type: Spontaneous
  Country: DK (occurrence: DK)
  Receive Date: 20140605
  Receipt Date: 20140605
  Transmission Date: 20141212
  Serious: Yes (Hospitalization)
  Sender: FDA-Public Use
  Company Number: DK-ABBVIE-14P-044-1244478-00

PATIENT
  Age: 11 Year
  Sex: Female

DRUGS (5)
  1. KLACID [Suspect]
     Indication: PNEUMONIA
     Dates: start: 20120417
  2. PRIMCILLIN [Suspect]
     Indication: PNEUMONIA
  3. BIOCLAVID [Suspect]
     Indication: PNEUMONIA
     Dosage: STRENGTH 500 MG + 125 MG
     Dates: start: 20120911
  4. CEFUROXIM FRESENIUS KABI [Suspect]
     Indication: BRONCHIECTASIS
     Dates: start: 20121115
  5. FLIXOTIDE [Concomitant]
     Indication: LUNG DISORDER
     Dates: start: 20120808

REACTIONS (3)
  - Haematochezia [Recovered/Resolved]
  - Clostridium difficile colitis [Recovered/Resolved]
  - Inflammatory bowel disease [None]
